FAERS Safety Report 13788847 (Version 1)
Quarter: 2017Q3

REPORT INFORMATION
  Report Type: Spontaneous
  Country: FR (occurrence: FR)
  Receive Date: 20170725
  Receipt Date: 20170725
  Transmission Date: 20171127
  Serious: Yes (Hospitalization, Other)
  Sender: FDA-Public Use
  Company Number: FR-AMGEN-FRASP2017111022

PATIENT
  Age: 46 Year
  Sex: Female
  Weight: 75 kg

DRUGS (13)
  1. REVOLADE [Concomitant]
     Active Substance: ELTROMBOPAG
     Dosage: 100 MG, QD
  2. DEXAMETHASONE. [Concomitant]
     Active Substance: DEXAMETHASONE
     Indication: PLASMA CELL MYELOMA
     Dosage: UNK
     Dates: start: 20161017
  3. BACTRIM [Concomitant]
     Active Substance: SULFAMETHOXAZOLE\TRIMETHOPRIM
     Dosage: 800 UNK, 3 TIMES/WK
     Dates: end: 201706
  4. KYPROLIS [Suspect]
     Active Substance: CARFILZOMIB
     Indication: PLASMA CELL MYELOMA
     Dosage: UNK
     Route: 042
     Dates: start: 20161017, end: 20170615
  5. NEULASTA [Concomitant]
     Active Substance: PEGFILGRASTIM
     Dosage: 6 MG, Q2WK
  6. LAROXYL [Concomitant]
     Active Substance: AMITRIPTYLINE
     Dosage: 25 DROPS IN THE EVENING
  7. HYDROCORTISONE. [Concomitant]
     Active Substance: HYDROCORTISONE
     Dosage: 20 MG, QD
  8. GAMMANORM [Concomitant]
     Active Substance: HUMAN IMMUNOGLOBULIN G
     Dosage: UNK, EVERY 15 DAYS
  9. DUROGESIC [Concomitant]
     Active Substance: FENTANYL
     Dosage: 150 MUG, QOD
  10. ZELITREX [Concomitant]
     Active Substance: VALACYCLOVIR HYDROCHLORIDE
     Dosage: 500 MG, QD
  11. ARANESP [Concomitant]
     Active Substance: DARBEPOETIN ALFA
     Dosage: 500 MUG, QWK
  12. CLAMOXYL [Concomitant]
     Active Substance: AMOXICILLIN\CLAVULANIC ACID
     Dosage: 1 G, BID
     Dates: end: 201706
  13. LYRICA [Concomitant]
     Active Substance: PREGABALIN
     Dosage: 300 MG, BID

REACTIONS (2)
  - Thrombocytopenia [Recovering/Resolving]
  - Haemolytic anaemia [Recovering/Resolving]

NARRATIVE: CASE EVENT DATE: 20170608
